FAERS Safety Report 7710175-4 (Version None)
Quarter: 2011Q3

REPORT INFORMATION
  Report Type: 
  Country: None (occurrence: None)
  Receive Date: 20110825
  Receipt Date: 20110823
  Transmission Date: 20111222
  Serious: Yes (Hospitalization, Disabling, Other)
  Sender: FDA-Public Use
  Company Number: DK-BAYER-2011-076554

PATIENT
  Age: 69 Year
  Sex: Female

DRUGS (7)
  1. NORVASC [Concomitant]
  2. NEORECORMON [Concomitant]
  3. PHOS-EX [Concomitant]
  4. OMNISCAN [Suspect]
     Indication: SCAN WITH CONTRAST
     Dosage: 40 ML, UNK
     Dates: start: 20051205, end: 20051205
  5. PANTOPRAZOLE SODIUM [Concomitant]
  6. RAMIPRIL [Concomitant]
  7. GADOLINIUM IN UNSPECIFIED DRUG [Suspect]
     Indication: RENAL TRANSPLANT
     Dosage: UNK
     Dates: start: 20030701, end: 20030701

REACTIONS (14)
  - ARTHRALGIA [None]
  - JOINT RANGE OF MOTION DECREASED [None]
  - TOTAL LUNG CAPACITY DECREASED [None]
  - PULMONARY ARTERIAL PRESSURE INCREASED [None]
  - DYSPHAGIA [None]
  - NEPHROGENIC SYSTEMIC FIBROSIS [None]
  - PAIN IN EXTREMITY [None]
  - PULMONARY FIBROSIS [None]
  - VASODILATATION [None]
  - SKIN SENSITISATION [None]
  - GAIT DISTURBANCE [None]
  - ASTHENIA [None]
  - OEDEMA PERIPHERAL [None]
  - LEFT VENTRICULAR DYSFUNCTION [None]
